FAERS Safety Report 9503856 (Version 1)
Quarter: 2013Q1

REPORT INFORMATION
  Report Type: Spontaneous
  Country: US (occurrence: None)
  Receive Date: 20130225
  Receipt Date: 20130225
  Transmission Date: 20140127
  Serious: No
  Sender: FDA-Public Use
  Company Number: 366356

PATIENT
  Age: 59 Year
  Sex: Female
  Weight: 133.8 kg

DRUGS (1)
  1. VICTOZA (LIRAGLUTIDE) SOLUTION FOR INJECTION, 6MG/ML [Suspect]
     Indication: TYPE 2 DIABETES MELLITUS
     Dosage: 0.6 MG, QD, SUBCUTANEOUS
     Route: 058
     Dates: start: 201210, end: 20121109

REACTIONS (3)
  - Dyspnoea [None]
  - Abdominal pain upper [None]
  - Vomiting [None]
